FAERS Safety Report 6692144-9 (Version None)
Quarter: 2010Q2

REPORT INFORMATION
  Report Type: 
  Country: None (occurrence: None)
  Receive Date: 20100422
  Receipt Date: 20091228
  Transmission Date: 20101027
  Serious: No
  Sender: FDA-Public Use
  Company Number: US-ASTRAZENECA-2009SE33816

PATIENT
  Sex: Female
  Weight: 80.7 kg

DRUGS (5)
  1. METOPROLOL SUCCINATE [Suspect]
     Route: 048
  2. PREDNISONE TAB [Concomitant]
  3. SPIRONOLACTONE [Concomitant]
  4. WARFARIN SODIUM [Concomitant]
  5. GLUCOSAMINE CHONDROITIN [Concomitant]

REACTIONS (2)
  - ARTHRALGIA [None]
  - HEARING IMPAIRED [None]
